FAERS Safety Report 9031991 (Version 2)
Quarter: 2013Q1

REPORT INFORMATION
  Report Type: Spontaneous
  Country: US (occurrence: US)
  Receive Date: 20130125
  Receipt Date: 20130304
  Transmission Date: 20140127
  Serious: Yes (Other)
  Sender: FDA-Public Use
  Company Number: US-BAYER-2013-007165

PATIENT
  Age: 28 Year
  Sex: Female
  Weight: 55.33 kg

DRUGS (1)
  1. MIRENA [Suspect]
     Indication: CONTRACEPTION
     Dosage: 20 MCG/24HR, CONT
     Route: 015
     Dates: start: 201110

REACTIONS (7)
  - Genital haemorrhage [None]
  - Device dislocation [None]
  - Abdominal pain lower [None]
  - Vulvovaginal pain [None]
  - Nausea [None]
  - Device issue [None]
  - Dyspareunia [None]
